FAERS Safety Report 21765545 (Version 2)
Quarter: 2023Q1

REPORT INFORMATION
  Report Type: Other
  Country: US (occurrence: None)
  Receive Date: 20221222
  Receipt Date: 20230215
  Transmission Date: 20230418
  Serious: Yes (Hospitalization, Other)
  Sender: FDA-Public Use
  Company Number: US-ROCHE-2569155

PATIENT
  Age: 56 Year
  Sex: Male
  Weight: 102.15 kg

DRUGS (7)
  1. OCREVUS [Suspect]
     Active Substance: OCRELIZUMAB
     Indication: Primary progressive multiple sclerosis
     Dosage: 300 MG IV*2, SEPARATED BY TWO WEEKS
     Route: 042
  2. OCREVUS [Suspect]
     Active Substance: OCRELIZUMAB
     Dosage: ONGOING - YES, LAST DOSE OF OCREVUS /AUG/2022 OR 20/AUG/2022 OR 21/AUG/2022, NEXT DOSE 17/FEB/2023
     Route: 042
     Dates: start: 201703
  3. ELIQUIS [Concomitant]
     Active Substance: APIXABAN
     Indication: Atrial fibrillation
     Dosage: ONGOING - YES
     Route: 048
     Dates: start: 202211
  4. GABAPENTIN [Concomitant]
     Active Substance: GABAPENTIN
     Indication: Muscle spasticity
     Dosage: ONGOING - YES, 2 CAPSULES AT A TIME, THREE TIMES A DAY, 6 CAPSULES TOTAL
     Route: 048
     Dates: start: 202211
  5. DILTIAZEM [Concomitant]
     Active Substance: DILTIAZEM
     Indication: Blood pressure measurement
     Dosage: ONGOING - YES, ONE TIME PER DAY IN EVENING
     Route: 048
     Dates: start: 202211
  6. FINASTERIDE [Concomitant]
     Active Substance: FINASTERIDE
     Indication: Benign prostatic hyperplasia
     Dosage: ONGOING - YES
     Route: 048
     Dates: start: 202203
  7. TESTOSTERONE CYPIONATE [Concomitant]
     Active Substance: TESTOSTERONE CYPIONATE
     Indication: Blood testosterone decreased
     Dosage: ONGOING - YES, EVERY OTHER WEEK
     Route: 030
     Dates: start: 201701

REACTIONS (11)
  - COVID-19 [Recovered/Resolved]
  - Pneumonia [Recovered/Resolved]
  - Atrial fibrillation [Recovered/Resolved]
  - Benign prostatic hyperplasia [Recovered/Resolved]
  - Off label use [Unknown]
  - Asthenia [Not Recovered/Not Resolved]
  - Muscular weakness [Not Recovered/Not Resolved]
  - Urticaria [Recovered/Resolved]
  - Balance disorder [Not Recovered/Not Resolved]
  - Dizziness [Recovered/Resolved]
  - Prostatomegaly [Not Recovered/Not Resolved]

NARRATIVE: CASE EVENT DATE: 20170301
